FAERS Safety Report 7539331-5 (Version None)
Quarter: 2011Q2

REPORT INFORMATION
  Report Type: 
  Country: None (occurrence: None)
  Receive Date: 20110610
  Receipt Date: 20110527
  Transmission Date: 20111010
  Serious: Yes (Hospitalization)
  Sender: FDA-Public Use
  Company Number: FR-JNJFOC-20110506609

PATIENT
  Sex: Male
  Weight: 83 kg

DRUGS (16)
  1. TRAMADOL HCL [Concomitant]
  2. REMICADE [Suspect]
     Indication: COLITIS ULCERATIVE
     Route: 042
     Dates: end: 20110125
  3. REMICADE [Suspect]
     Route: 042
  4. ATARAX [Concomitant]
     Dosage: 25 MG ON DEMAND
  5. SPASFON [Concomitant]
  6. PENTASA [Concomitant]
     Route: 054
     Dates: start: 20101209
  7. XANAX [Concomitant]
  8. REMICADE [Suspect]
     Route: 042
     Dates: start: 20101102
  9. REMICADE [Suspect]
     Route: 042
     Dates: start: 20101219
  10. REMICADE [Suspect]
     Dosage: 1ST DOSE
     Route: 042
     Dates: start: 20100920
  11. ACETAMINOPHEN [Concomitant]
     Indication: PAIN
  12. DEBRIDAT [Concomitant]
  13. ALUMINUM HYDROXIDE AND MAGNESIUM TRISILICATE [Concomitant]
     Indication: DIARRHOEA
     Dosage: X4/DAY FOR DIARRHEA
  14. EFFEXOR [Concomitant]
  15. PENTASA [Concomitant]
     Indication: COLITIS ULCERATIVE
     Route: 048
     Dates: start: 20101209
  16. HYDROCORTISONE [Concomitant]
     Indication: COLITIS ULCERATIVE
     Route: 048
     Dates: start: 20101031

REACTIONS (2)
  - COLITIS ULCERATIVE [None]
  - ANXIETY [None]
